FAERS Safety Report 8221620-2 (Version None)
Quarter: 2012Q1

REPORT INFORMATION
  Report Type: 
  Country: None (occurrence: None)
  Receive Date: 20120316
  Receipt Date: 20120307
  Transmission Date: 20120608
  Serious: Yes (Other)
  Sender: FDA-Public Use
  Company Number: 2011HGS-002385

PATIENT
  Age: 41 Year
  Sex: Female
  Weight: 97.5234 kg

DRUGS (1)
  1. BENLYSTA [Suspect]
     Indication: SYSTEMIC LUPUS ERYTHEMATOSUS
     Dosage: 10 MG/KG, 1 IN 14 D, INTRAVENOUS DRIP
     Route: 041
     Dates: start: 20110601, end: 20110701

REACTIONS (4)
  - ULCER HAEMORRHAGE [None]
  - HERPES SIMPLEX [None]
  - SKIN DISCOLOURATION [None]
  - SKIN ULCER [None]
